FAERS Safety Report 14922180 (Version 2)
Quarter: 2018Q3

REPORT INFORMATION
  Report Type: Spontaneous
  Country: GB (occurrence: GB)
  Receive Date: 20180522
  Receipt Date: 20180702
  Transmission Date: 20181010
  Serious: Yes (Other)
  Sender: FDA-Public Use
  Company Number: GB-AMGEN-GBRSP2018065734

PATIENT
  Age: 85 Year
  Sex: Female
  Weight: 65 kg

DRUGS (3)
  1. TALIMOGENE LAHERPAREPVEC [Suspect]
     Active Substance: TALIMOGENE LAHERPAREPVEC
     Dosage: UNK (10 TO 8 BLUE CAP 0.7 MLS)
     Route: 026
     Dates: start: 20180329, end: 20180426
  2. TALIMOGENE LAHERPAREPVEC [Suspect]
     Active Substance: TALIMOGENE LAHERPAREPVEC
     Dosage: 0.4 ML, UNK  (10 MM LESION INJECTED) (100 MILLION PFU/ML)
     Route: 026
     Dates: start: 20171221, end: 20171221
  3. TALIMOGENE LAHERPAREPVEC [Suspect]
     Active Substance: TALIMOGENE LAHERPAREPVEC
     Indication: MALIGNANT MELANOMA
     Dosage: 3.6 ML, UNK (INTO 8 LESION)
     Route: 026
     Dates: start: 20171102, end: 20171102

REACTIONS (3)
  - Skin mass [Recovering/Resolving]
  - Blister [Recovering/Resolving]
  - Melanoma recurrent [Recovering/Resolving]

NARRATIVE: CASE EVENT DATE: 201711
